FAERS Safety Report 5946897-5 (Version None)
Quarter: 2008Q4

REPORT INFORMATION
  Report Type: 
  Country: None (occurrence: None)
  Receive Date: 20081110
  Receipt Date: 20081103
  Transmission Date: 20090506
  Serious: Yes (Other)
  Sender: FDA-Public Use
  Company Number: US-GILEAD-2008-0017313

PATIENT
  Sex: Male

DRUGS (3)
  1. ATRIPLA [Suspect]
     Indication: HIV INFECTION
     Dates: start: 20080101
  2. MULTI-VITAMINS [Concomitant]
  3. CLARITIN [Concomitant]

REACTIONS (1)
  - CATARACT [None]
